FAERS Safety Report 17541107 (Version 2)
Quarter: 2020Q1

REPORT INFORMATION
  Report Type: Spontaneous
  Country: BE (occurrence: BE)
  Receive Date: 20200313
  Receipt Date: 20200316
  Transmission Date: 20200409
  Serious: Yes (Hospitalization, Other)
  Sender: FDA-Public Use
  Company Number: BE-ELI_LILLY_AND_COMPANY-BE202003004123

PATIENT
  Age: 78 Year
  Sex: Female

DRUGS (2)
  1. VERZENIO [Suspect]
     Active Substance: ABEMACICLIB
     Indication: PRODUCT USED FOR UNKNOWN INDICATION
     Dosage: 150 MG, BID
     Route: 065
     Dates: start: 20190819, end: 20200229
  2. ASAFLOW [Concomitant]
     Active Substance: ASPIRIN
     Indication: PRODUCT USED FOR UNKNOWN INDICATION
     Dosage: UNK, UNKNOWN
     Route: 065

REACTIONS (14)
  - Balance disorder [Unknown]
  - Incontinence [Unknown]
  - Ecchymosis [Unknown]
  - Poikilocytosis [Unknown]
  - Haematoma [Unknown]
  - Mental impairment [Unknown]
  - Fatigue [Unknown]
  - Pancytopenia [Unknown]
  - Neutrophil toxic granulation present [Unknown]
  - Dizziness [Unknown]
  - Diarrhoea [Unknown]
  - Anisocytosis [Unknown]
  - Haemoglobin decreased [Unknown]
  - Fall [Unknown]

NARRATIVE: CASE EVENT DATE: 20190901
